FAERS Safety Report 7911830-3 (Version None)
Quarter: 2011Q4

REPORT INFORMATION
  Report Type: 
  Country: None (occurrence: None)
  Receive Date: 20111114
  Receipt Date: 20111107
  Transmission Date: 20120403
  Serious: Yes (Other)
  Sender: FDA-Public Use
  Company Number: US-AMGEN-USASP2011058165

PATIENT
  Age: 68 Year
  Sex: Female

DRUGS (1)
  1. ENBREL [Suspect]
     Indication: RHEUMATOID ARTHRITIS
     Dosage: 50 MG, QWK
     Dates: start: 20110926, end: 20110926

REACTIONS (6)
  - HEADACHE [None]
  - DECREASED APPETITE [None]
  - NAUSEA [None]
  - INJECTION SITE PAIN [None]
  - SUICIDAL IDEATION [None]
  - PSORIASIS [None]
